FAERS Safety Report 8792552 (Version 2)
Quarter: 2013Q1

REPORT INFORMATION
  Report Type: Spontaneous
  Country: US (occurrence: US)
  Receive Date: 20120918
  Receipt Date: 20130307
  Transmission Date: 20140127
  Serious: Yes (Other)
  Sender: FDA-Public Use
  Company Number: US-JNJFOC-20120903585

PATIENT
  Age: 20 Year
  Sex: Female

DRUGS (2)
  1. INVEGA SUSTENNA [Suspect]
     Indication: BIPOLAR DISORDER
     Route: 030
     Dates: start: 20120701
  2. LAMOTRIGINE [Suspect]
     Indication: PRODUCT USED FOR UNKNOWN INDICATION
     Route: 065
     Dates: start: 20120701

REACTIONS (6)
  - Weight increased [Not Recovered/Not Resolved]
  - Slow speech [Not Recovered/Not Resolved]
  - Insomnia [Unknown]
  - Energy increased [Not Recovered/Not Resolved]
  - Thinking abnormal [Recovered/Resolved]
  - Feeling abnormal [Not Recovered/Not Resolved]
